FAERS Safety Report 9823309 (Version 1)
Quarter: 2014Q1

REPORT INFORMATION
  Report Type: Spontaneous
  Country: US (occurrence: US)
  Receive Date: 20140116
  Receipt Date: 20140116
  Transmission Date: 20141002
  Serious: Yes (Hospitalization)
  Sender: FDA-Public Use
  Company Number: US-ABBVIE-14P-163-1187113-00

PATIENT
  Age: 60 Year
  Sex: Female
  Weight: 41.77 kg

DRUGS (8)
  1. HUMIRA [Suspect]
     Indication: CROHN^S DISEASE
     Route: 058
     Dates: start: 2010, end: 201312
  2. HUMIRA [Suspect]
     Route: 058
     Dates: start: 201312
  3. HYDROXY CHLOROQUINE [Concomitant]
     Indication: SYSTEMIC LUPUS ERYTHEMATOSUS
  4. UNKNOWN STEROID [Concomitant]
     Indication: CROHN^S DISEASE
  5. PROBIOTIC [Concomitant]
     Indication: CROHN^S DISEASE
  6. CALCIUM [Concomitant]
     Indication: OSTEOPOROSIS
  7. TRAMADOL [Concomitant]
     Indication: PAIN
  8. ALENDRONATE [Concomitant]
     Indication: OSTEOPOROSIS

REACTIONS (5)
  - Haemoglobin decreased [Recovered/Resolved]
  - Fall [Not Recovered/Not Resolved]
  - Hip fracture [Recovering/Resolving]
  - Drug ineffective [Not Recovered/Not Resolved]
  - Incorrect product storage [Unknown]
